FAERS Safety Report 7425067-8 (Version None)
Quarter: 2011Q2

REPORT INFORMATION
  Report Type: 
  Country: None (occurrence: None)
  Receive Date: 20110420
  Receipt Date: 20110408
  Transmission Date: 20111010
  Serious: Yes (Hospitalization)
  Sender: FDA-Public Use
  Company Number: DE-BIOGENIDEC-2011BI007398

PATIENT
  Age: 48 Year
  Sex: Female
  Weight: 95 kg

DRUGS (5)
  1. PANTOPRAZOLE [Concomitant]
     Indication: GASTRITIS
     Route: 048
  2. OLMESARTAN MEDOXOMIL [Concomitant]
     Indication: HYPERTENSION
     Route: 048
  3. TIZANIDINE HCL [Concomitant]
     Indication: MUSCLE SPASTICITY
     Route: 048
  4. TYSABRI [Suspect]
     Indication: MULTIPLE SCLEROSIS
     Route: 042
     Dates: start: 20091001, end: 20110223
  5. HYDROCHLOROTHIAZIDE [Concomitant]
     Indication: HYPERTENSION
     Route: 048

REACTIONS (1)
  - PROGRESSIVE MULTIFOCAL LEUKOENCEPHALOPATHY [None]
